FAERS Safety Report 15365939 (Version 1)
Quarter: 2018Q3

REPORT INFORMATION
  Report Type: Spontaneous
  Country: US (occurrence: US)
  Receive Date: 20180910
  Receipt Date: 20180910
  Transmission Date: 20181010
  Serious: No
  Sender: FDA-Public Use
  Company Number: US-BAYER-2018-161183

PATIENT
  Sex: Male

DRUGS (3)
  1. MAGNEVIST [Suspect]
     Active Substance: GADOPENTETATE DIMEGLUMINE
     Indication: COMPUTERISED TOMOGRAM
     Dosage: UNK UNK, ONCE
  2. IODINE. [Suspect]
     Active Substance: IODINE
     Indication: COMPUTERISED TOMOGRAM
  3. IODINE. [Suspect]
     Active Substance: IODINE
     Indication: METASTASES TO CENTRAL NERVOUS SYSTEM
     Dosage: UNK

REACTIONS (1)
  - Contraindicated product administered [None]
